FAERS Safety Report 5936768-2 (Version None)
Quarter: 2008Q4

REPORT INFORMATION
  Report Type: 
  Country: None (occurrence: None)
  Receive Date: 20081027
  Receipt Date: 20081010
  Transmission Date: 20090506
  Serious: Yes (Hospitalization)
  Sender: FDA-Public Use
  Company Number: THYM-1000803

PATIENT
  Age: 69 Year
  Sex: Male
  Weight: 104 kg

DRUGS (6)
  1. THYMOGLOBULIN [Suspect]
     Indication: LIVER TRANSPLANT REJECTION
     Dosage: 8.3 MG, ONCE; INTRAVENOUS
     Route: 042
     Dates: start: 20081008, end: 20081008
  2. TACROLIMUS [Concomitant]
  3. MYCOPHENOLATE MOFETIL [Concomitant]
  4. OMEPRAZOLE [Concomitant]
  5. FLUCONAZOLE [Concomitant]
  6. NOVOMIX 30 (INSULIN ASPART, ISOPHANE INSULIN) [Concomitant]

REACTIONS (6)
  - DIZZINESS [None]
  - PALPITATIONS [None]
  - PYREXIA [None]
  - TACHYCARDIA [None]
  - TREMOR [None]
  - VERTIGO [None]
